FAERS Safety Report 4643122-2 (Version None)
Quarter: 2005Q2

REPORT INFORMATION
  Report Type: 
  Country: None (occurrence: None)
  Receive Date: 20050421
  Receipt Date: 20050411
  Transmission Date: 20051028
  Serious: Yes (Other)
  Sender: FDA-Public Use
  Company Number: 2005058471

PATIENT
  Age: 21 Year
  Sex: Male

DRUGS (2)
  1. BEXTRA [Suspect]
     Indication: ILL-DEFINED DISORDER
     Dates: start: 20040801
  2. AMOXICILLIN [Suspect]
     Indication: ILL-DEFINED DISORDER

REACTIONS (2)
  - HYPERSENSITIVITY [None]
  - RASH GENERALISED [None]
